FAERS Safety Report 11080901 (Version 1)
Quarter: 2015Q2

REPORT INFORMATION
  Report Type: Spontaneous
  Country: US (occurrence: None)
  Receive Date: 20150430
  Receipt Date: 20150430
  Transmission Date: 20150821
  Serious: No
  Sender: FDA-Public Use
  Company Number: None

PATIENT
  Age: 52 Year
  Sex: Female
  Weight: 68.95 kg

DRUGS (1)
  1. ESTRADIOL. [Suspect]
     Active Substance: ESTRADIOL
     Indication: MENOPAUSE
     Dosage: APPLIED TO SURFACE, USUALLY THE SKIN
     Dates: start: 20150302, end: 20150420

REACTIONS (8)
  - Product substitution issue [None]
  - Application site reaction [None]
  - Rash erythematous [None]
  - Application site erythema [None]
  - Hypersensitivity [None]
  - Application site pruritus [None]
  - Skin disorder [None]
  - Acne [None]

NARRATIVE: CASE EVENT DATE: 20150306
